FAERS Safety Report 4746904-1 (Version None)
Quarter: 2005Q3

REPORT INFORMATION
  Report Type: 
  Country: None (occurrence: None)
  Receive Date: 20050817
  Receipt Date: 20050802
  Transmission Date: 20060218
  Serious: Yes (Hospitalization)
  Sender: FDA-Public Use
  Company Number: IE-MERCK-0508GBR00065

PATIENT
  Age: 64 Year
  Sex: Male

DRUGS (13)
  1. VIOXX [Suspect]
     Route: 048
  2. METHOTREXATE [Suspect]
     Indication: RHEUMATOID ARTHRITIS
     Route: 048
     Dates: start: 20040727, end: 20040809
  3. AMOXICILLIN AND CLAVULANATE POTASSIUM [Suspect]
     Route: 051
  4. ACETAMINOPHEN AND DIHYDROCODEINE BITARTRATE [Suspect]
     Route: 065
  5. FLUOXETINE [Suspect]
     Route: 065
  6. ADALIMUMAB [Suspect]
     Route: 058
  7. ENALAPRIL MALEATE [Concomitant]
     Route: 065
  8. ALLOPURINOL [Concomitant]
     Route: 065
  9. DICLOFENAC SODIUM [Concomitant]
     Route: 065
  10. REBAMIPIDE [Concomitant]
     Route: 065
  11. CILNIDIPINE [Concomitant]
     Route: 065
  12. AMOXICILLIN AND CLAVULANATE POTASSIUM [Concomitant]
     Route: 065
  13. ACETAMINOPHEN AND DIHYDROCODEINE BITARTRATE [Concomitant]
     Route: 065

REACTIONS (5)
  - ABDOMINAL PAIN [None]
  - BONE MARROW DEPRESSION [None]
  - DIARRHOEA [None]
  - RETINAL HAEMORRHAGE [None]
  - URINE OUTPUT DECREASED [None]
